FAERS Safety Report 9777590 (Version 2)
Quarter: 2013Q4

REPORT INFORMATION
  Report Type: Report from Study
  Country: US (occurrence: US)
  Receive Date: 20131222
  Receipt Date: 20131222
  Transmission Date: 20140711
  Serious: Yes (Hospitalization)
  Sender: FDA-Public Use
  Company Number: US-MERCK-1304USA003577

PATIENT
  Age: 62 Year
  Sex: Female
  Weight: 63.49 kg

DRUGS (5)
  1. VORINOSTAT [Suspect]
     Indication: PLASMA CELL MYELOMA
     Dosage: 300 MG, DAYS 1-7 AND 15-21
     Route: 048
     Dates: start: 20130404
  2. CARFILZOMIB [Suspect]
     Indication: PLASMA CELL MYELOMA
     Dosage: 20 MG/M2, DAYS 1,2,8,9,15 AND 16
     Route: 042
     Dates: start: 20130404
  3. LENALIDOMIDE [Suspect]
     Indication: PLASMA CELL MYELOMA
     Dosage: 25 MG, DAYS 1-21 OT A 28 DAY CYCLE
     Route: 048
     Dates: start: 20130404
  4. DEXAMETHASONE [Suspect]
     Indication: PLASMA CELL MYELOMA
     Dosage: 40 MG, QW
     Route: 048
     Dates: start: 20130404
  5. DEXAMETHASONE [Suspect]
     Dosage: 40 MG, QW
     Route: 042
     Dates: start: 20130404

REACTIONS (4)
  - Lung infiltration [Unknown]
  - Pyrexia [Unknown]
  - Dyspnoea [Unknown]
  - Upper respiratory tract infection [Recovered/Resolved]
